FAERS Safety Report 14413884 (Version 2)
Quarter: 2018Q3

REPORT INFORMATION
  Report Type: Spontaneous
  Country: DE (occurrence: DE)
  Receive Date: 20180119
  Receipt Date: 20180702
  Transmission Date: 20181010
  Serious: Yes (Other)
  Sender: FDA-Public Use
  Company Number: DE-009507513-1801DEU007429

PATIENT
  Age: 65 Year
  Sex: Male
  Weight: 91 kg

DRUGS (2)
  1. YERVOY [Concomitant]
     Active Substance: IPILIMUMAB
     Dosage: 270 MG, 4X EVERY THREE WEEKS
     Dates: start: 20160124, end: 20160628
  2. KEYTRUDA [Suspect]
     Active Substance: PEMBROLIZUMAB
     Indication: METASTATIC MALIGNANT MELANOMA
     Dosage: 2 MG/KG, 21 (UNIT NOT PROVIDED0
     Dates: start: 201602, end: 201705

REACTIONS (4)
  - Ureterolithiasis [Unknown]
  - Immune thrombocytopenic purpura [Recovered/Resolved]
  - Herpes zoster [Recovered/Resolved]
  - Cough [Unknown]

NARRATIVE: CASE EVENT DATE: 20160301
